FAERS Safety Report 5185160-X (Version None)
Quarter: 2006Q4

REPORT INFORMATION
  Report Type: 
  Country: None (occurrence: None)
  Receive Date: 20061220
  Receipt Date: 20060613
  Transmission Date: 20070319
  Serious: No
  Sender: FDA-Public Use
  Company Number: US-GLAXOSMITHKLINE-A0608773A

PATIENT
  Age: 54 Year
  Sex: Male

DRUGS (2)
  1. NICODERM CQ [Suspect]
     Dates: start: 20060610
  2. NICODERM CQ [Suspect]
     Dates: start: 20060610

REACTIONS (4)
  - ENERGY INCREASED [None]
  - FEELING JITTERY [None]
  - NICOTINE DEPENDENCE [None]
  - RESTLESSNESS [None]
